FAERS Safety Report 4777109-6 (Version None)
Quarter: 2005Q3

REPORT INFORMATION
  Report Type: 
  Country: None (occurrence: None)
  Receive Date: 20050922
  Receipt Date: 20050922
  Transmission Date: 20060218
  Serious: Yes (Hospitalization)
  Sender: FDA-Public Use
  Company Number: None

PATIENT
  Sex: Male

DRUGS (14)
  1. WARFARIN 5 MG [Suspect]
     Indication: ATRIAL FIBRILLATION
     Dosage: 5 MG DAILY PO
     Route: 048
  2. CYANOCOBALAMIN [Concomitant]
  3. METOPROLOL XL [Concomitant]
  4. FUROSEMIDE [Concomitant]
  5. FLUNISOLIDE ORAL INHALER [Concomitant]
  6. COMBIVENT [Concomitant]
  7. INSULIN [Concomitant]
  8. CLOPIDOGREL [Concomitant]
  9. FELODIPINE [Concomitant]
  10. ISOSORBIDE MONONITRATE [Concomitant]
  11. METHIMAZOLE [Concomitant]
  12. LISINOPRIL [Concomitant]
  13. FERROUS SULFATE [Concomitant]
  14. NIASPAN [Concomitant]

REACTIONS (3)
  - INTERNATIONAL NORMALISED RATIO INCREASED [None]
  - POST PROCEDURAL HAEMORRHAGE [None]
  - RECTAL HAEMORRHAGE [None]
